FAERS Safety Report 8621805-7 (Version None)
Quarter: 2012Q3

REPORT INFORMATION
  Report Type: 
  Country: None (occurrence: None)
  Receive Date: 20120821
  Receipt Date: 20120821
  Transmission Date: 20120928
  Serious: Yes (Hospitalization)
  Sender: FDA-Public Use
  Company Number: None

PATIENT
  Age: 93 Year
  Sex: Female

DRUGS (2)
  1. RANIBIZUMAB 40MG/ML GENENTECH, INC. [Suspect]
     Indication: AGE-RELATED MACULAR DEGENERATION
     Dosage: 2.0MG AS NEEDED OPHTHALMIC
     Route: 047
     Dates: start: 20110810, end: 20111109
  2. RANIBIZUMAB 40MG/ML GENENTECH, INC. [Suspect]
     Indication: AGE-RELATED MACULAR DEGENERATION
     Dosage: 2.0MG AS NEEDED OPHTHALMIC
     Route: 047
     Dates: start: 20111207, end: 20120801

REACTIONS (1)
  - DYSPNOEA [None]
